FAERS Safety Report 15641255 (Version 1)
Quarter: 2018Q4

REPORT INFORMATION
  Report Type: Spontaneous
  Country: FR (occurrence: FR)
  Receive Date: 20181120
  Receipt Date: 20181120
  Transmission Date: 20190205
  Serious: Yes (Hospitalization)
  Sender: FDA-Public Use
  Company Number: PHHY2018FR158770

PATIENT
  Age: 61 Year
  Sex: Female
  Weight: 111 kg

DRUGS (3)
  1. SPIFEN [Suspect]
     Active Substance: IBUPROFEN
     Indication: EAR PAIN
     Route: 048
  2. CONEBILOX [Concomitant]
     Active Substance: HYDROCHLOROTHIAZIDE\NEBIVOLOL HYDROCHLORIDE
     Indication: HYPERTENSION
     Route: 048
  3. AMOXICILLIN. [Suspect]
     Active Substance: AMOXICILLIN
     Indication: EAR PAIN
     Route: 048

REACTIONS (1)
  - Erythema nodosum [Recovering/Resolving]

NARRATIVE: CASE EVENT DATE: 20180913
